FAERS Safety Report 4462181-3 (Version None)
Quarter: 2004Q3

REPORT INFORMATION
  Report Type: 
  Country: None (occurrence: None)
  Receive Date: 20040927
  Receipt Date: 20040830
  Transmission Date: 20050211
  Serious: Yes (Hospitalization)
  Sender: FDA-Public Use
  Company Number: 200410319BBE

PATIENT
  Age: 66 Year
  Sex: Female
  Weight: 62.8 kg

DRUGS (3)
  1. GAMUNEX [Suspect]
     Dosage: INTRAVENOUS
     Route: 042
     Dates: start: 20040816
  2. PLENDIL [Concomitant]
  3. CLONIDINE HCL [Concomitant]

REACTIONS (2)
  - BRADYCARDIA [None]
  - PARAESTHESIA [None]
